FAERS Safety Report 7590141-2 (Version None)
Quarter: 2011Q3

REPORT INFORMATION
  Report Type: 
  Country: None (occurrence: None)
  Receive Date: 20110705
  Receipt Date: 20110628
  Transmission Date: 20111222
  Serious: Yes (Other)
  Sender: FDA-Public Use
  Company Number: B0730620A

PATIENT
  Age: 52 Year
  Sex: Female

DRUGS (1)
  1. SERETIDE [Suspect]
     Route: 065

REACTIONS (4)
  - HYPOAESTHESIA [None]
  - DRUG INEFFECTIVE [None]
  - HYPOAESTHESIA ORAL [None]
  - ASTHMA [None]
